FAERS Safety Report 5701418-7 (Version None)
Quarter: 2008Q2

REPORT INFORMATION
  Report Type: 
  Country: None (occurrence: None)
  Receive Date: 20080410
  Receipt Date: 20080404
  Transmission Date: 20081010
  Serious: Yes (Disabling)
  Sender: FDA-Public Use
  Company Number: US-MERCK-0707USA04244

PATIENT
  Age: 79 Year
  Sex: Female

DRUGS (6)
  1. ZETIA [Suspect]
     Indication: BLOOD CHOLESTEROL INCREASED
     Route: 048
     Dates: start: 20040101, end: 20061201
  2. CLARINEX [Concomitant]
     Route: 065
  3. PROVENTIL [Concomitant]
     Route: 065
  4. DIOVAN [Concomitant]
     Route: 065
  5. LASIX [Concomitant]
     Route: 065
  6. PLAVIX [Concomitant]
     Route: 065

REACTIONS (12)
  - CONSTIPATION [None]
  - HYPOTONIA [None]
  - MOVEMENT DISORDER [None]
  - MUSCLE DISORDER [None]
  - MUSCLE SPASMS [None]
  - MUSCULAR WEAKNESS [None]
  - MYALGIA [None]
  - OEDEMA PERIPHERAL [None]
  - ORAL INFECTION [None]
  - PAIN [None]
  - PAIN IN EXTREMITY [None]
  - SWOLLEN TONGUE [None]
